FAERS Safety Report 7801801-X (Version None)
Quarter: 2011Q4

REPORT INFORMATION
  Report Type: 
  Country: None (occurrence: None)
  Receive Date: 20111007
  Receipt Date: 20110929
  Transmission Date: 20120403
  Serious: Yes (Other)
  Sender: FDA-Public Use
  Company Number: BR-PFIZER INC-2011233800

PATIENT
  Age: 43 Year
  Sex: Male

DRUGS (1)
  1. CAVERJECT [Suspect]
     Route: 017

REACTIONS (3)
  - PENIS INJURY [None]
  - PENIS DISORDER [None]
  - PEYRONIE'S DISEASE [None]
